FAERS Safety Report 10060297 (Version 4)
Quarter: 2015Q2

REPORT INFORMATION
  Report Type: Spontaneous
  Country: US (occurrence: US)
  Receive Date: 20140404
  Receipt Date: 20150402
  Transmission Date: 20150821
  Serious: Yes (Death, Hospitalization, Other)
  Sender: FDA-Public Use
  Company Number: US-MERCK-1404USA002406

PATIENT
  Sex: Male

DRUGS (1)
  1. JANUMET [Suspect]
     Active Substance: METFORMIN HYDROCHLORIDE\SITAGLIPTIN PHOSPHATE
     Indication: PRODUCT USED FOR UNKNOWN INDICATION
     Dosage: UNK
     Route: 048
     Dates: start: 20110103, end: 201307

REACTIONS (15)
  - Gastroenterostomy [Unknown]
  - Stent placement [Unknown]
  - Emotional distress [Unknown]
  - Radiotherapy [Unknown]
  - Gastrointestinal obstruction [Unknown]
  - Pancreaticoduodenectomy [Unknown]
  - Death [Fatal]
  - Histoplasmosis [Unknown]
  - Intestinal adhesion lysis [Unknown]
  - Vascular graft [Unknown]
  - Surgery [Unknown]
  - Duodenal stenosis [Unknown]
  - Histoplasmosis [Unknown]
  - Pancreatic carcinoma [Recovered/Resolved]
  - Dyspepsia [Unknown]

NARRATIVE: CASE EVENT DATE: 2013
